FAERS Safety Report 17643575 (Version 1)
Quarter: 2020Q2

REPORT INFORMATION
  Report Type: Spontaneous
  Country: US (occurrence: US)
  Receive Date: 20200408
  Receipt Date: 20200408
  Transmission Date: 20200713
  Serious: No
  Sender: FDA-Public Use
  Company Number: US-ALLERGAN-1946968US

PATIENT
  Sex: Female

DRUGS (5)
  1. QVAR [Concomitant]
     Active Substance: BECLOMETHASONE DIPROPIONATE
     Indication: ASTHMA
  2. ALBUTEROL                          /00139501/ [Concomitant]
     Active Substance: ALBUTEROL
     Indication: ASTHMA
  3. LILETTA [Suspect]
     Active Substance: LEVONORGESTREL
     Indication: CONTRACEPTION
     Dosage: 52 MG, SINGLE
     Route: 015
     Dates: start: 20191031, end: 20191114
  4. BUPROPION. [Concomitant]
     Active Substance: BUPROPION
  5. CLONAZEPAM. [Concomitant]
     Active Substance: CLONAZEPAM

REACTIONS (1)
  - Device expulsion [Recovered/Resolved]
